FAERS Safety Report 8800079 (Version 1)
Quarter: 2012Q4

REPORT INFORMATION
  Report Type: 
  Country: ES (occurrence: ES)
  Receive Date: 20120921
  Receipt Date: 20120921
  Transmission Date: 20130627
  Serious: Yes (Life-Threatening, Hospitalization)
  Sender: FDA-Public Use
  Company Number: ES-GE HEALTHCARE MEDICAL DIAGNOSTICS-VISP-NO-1209S-0391

PATIENT
  Age: 64 Year
  Sex: Female

DRUGS (6)
  1. VISIPAQUE [Suspect]
     Indication: PRODUCT USED FOR UNKNOWN INDICATION
     Dosage: dose not reported
     Route: 042
     Dates: start: 20120427, end: 20120427
  2. FUROSEMIDE [Interacting]
     Indication: RENAL FAILURE CHRONIC
     Route: 048
     Dates: start: 20120423, end: 20120430
  3. AMLODIPINE [Interacting]
     Indication: HYPERTENSION
     Route: 048
     Dates: start: 20120423, end: 20120430
  4. HYDRALAZINE [Interacting]
     Route: 048
     Dates: start: 20120423, end: 20120430
  5. ATORVASTATIN [Concomitant]
  6. GABAPENTINA [Concomitant]

REACTIONS (3)
  - Hyperkalaemia [Recovered/Resolved]
  - Nodal rhythm [Recovered/Resolved]
  - Renal failure acute [Recovered/Resolved]
